FAERS Safety Report 26063470 (Version 1)
Quarter: 2025Q4

REPORT INFORMATION
  Report Type: Spontaneous
  Country: CN (occurrence: CN)
  Receive Date: 20251119
  Receipt Date: 20251119
  Transmission Date: 20260117
  Serious: Yes (Other)
  Sender: BOEHRINGER INGELHEIM
  Company Number: CN-BoehringerIngelheim-2025-BI-107557

PATIENT
  Age: 57 Year
  Sex: Male

DRUGS (5)
  1. AFATINIB [Suspect]
     Active Substance: AFATINIB
     Indication: Lung adenocarcinoma
     Dates: start: 2023
  2. AFATINIB [Suspect]
     Active Substance: AFATINIB
     Indication: EGFR gene mutation
  3. Paclitaxel (albumin-bound) plus carboplatin [Concomitant]
     Indication: Lung adenocarcinoma
  4. Paclitaxel (albumin-bound) plus carboplatin [Concomitant]
     Indication: EGFR gene mutation
  5. CAMRELIZUMAB [Concomitant]
     Active Substance: CAMRELIZUMAB
     Indication: Product used for unknown indication

REACTIONS (7)
  - Metastases to chest wall [Not Recovered/Not Resolved]
  - Malignant neoplasm progression [Not Recovered/Not Resolved]
  - Lymphadenopathy [Not Recovered/Not Resolved]
  - Transaminases increased [Unknown]
  - General physical health deterioration [Unknown]
  - Superior vena cava syndrome [Unknown]
  - Condition aggravated [Unknown]

NARRATIVE: CASE EVENT DATE: 20230101
